FAERS Safety Report 5526335-7 (Version None)
Quarter: 2007Q4

REPORT INFORMATION
  Report Type: 
  Country: None (occurrence: None)
  Receive Date: 20071121
  Receipt Date: 20071121
  Transmission Date: 20080405
  Serious: Yes (Other)
  Sender: FDA-Public Use
  Company Number: None

PATIENT
  Age: 19 Year
  Sex: Female
  Weight: 49.4421 kg

DRUGS (1)
  1. MIDAZOLAM HCL [Suspect]
     Indication: SEDATION
     Dosage: 10MG 1MG/5MIN IV
     Route: 042
     Dates: start: 20050512

REACTIONS (2)
  - EXCESSIVE SEXUAL FANTASIES [None]
  - LEGAL PROBLEM [None]
